FAERS Safety Report 5511103-2 (Version None)
Quarter: 2007Q4

REPORT INFORMATION
  Report Type: 
  Country: None (occurrence: None)
  Receive Date: 20071107
  Receipt Date: 20071022
  Transmission Date: 20080405
  Serious: Yes (Hospitalization)
  Sender: FDA-Public Use
  Company Number: 8027713

PATIENT
  Age: 45 Year
  Sex: Male

DRUGS (4)
  1. KEPPRA [Suspect]
     Indication: EPILEPSY
     Dosage: 500 MG /D PO
     Route: 048
     Dates: start: 20070401, end: 20070722
  2. EFAVIRENZ [Concomitant]
  3. KIVEXA [Concomitant]
  4. DIAZEPAM [Concomitant]

REACTIONS (8)
  - ADVERSE DRUG REACTION [None]
  - ANXIETY [None]
  - CONVULSION [None]
  - LIMB INJURY [None]
  - POSTICTAL STATE [None]
  - PSYCHOTIC DISORDER [None]
  - SELF INJURIOUS BEHAVIOUR [None]
  - TENSION [None]
